FAERS Safety Report 8335624-2 (Version None)
Quarter: 2012Q2

REPORT INFORMATION
  Report Type: 
  Country: None (occurrence: None)
  Receive Date: 20120504
  Receipt Date: 20120430
  Transmission Date: 20120825
  Serious: Yes (Hospitalization)
  Sender: FDA-Public Use
  Company Number: AU-BIOGENIDEC-2012BI015342

PATIENT
  Age: 51 Year
  Sex: Female

DRUGS (1)
  1. TYSABRI [Suspect]
     Indication: MULTIPLE SCLEROSIS
     Route: 042
     Dates: start: 20120215, end: 20120215

REACTIONS (7)
  - THROAT TIGHTNESS [None]
  - INFUSION RELATED REACTION [None]
  - TACHYCARDIA [None]
  - HYPOTENSION [None]
  - RASH [None]
  - DYSPNOEA [None]
  - FLUSHING [None]
